FAERS Safety Report 24448989 (Version 1)
Quarter: 2024Q4

REPORT INFORMATION
  Report Type: Report from Study
  Country: CL (occurrence: CL)
  Receive Date: 20241017
  Receipt Date: 20241017
  Transmission Date: 20250115
  Serious: Yes (Other)
  Sender: JOHNSON AND JOHNSON
  Company Number: CL-BAYER-2024A144519

PATIENT
  Age: 47 Year
  Sex: Female

DRUGS (7)
  1. VENTAVIS [Suspect]
     Active Substance: ILOPROST
     Indication: Pulmonary hypertension
     Dosage: 1 ML, QID
     Route: 055
     Dates: start: 201804, end: 20240929
  2. AMBRISENTAN [Concomitant]
     Active Substance: AMBRISENTAN
     Dosage: 1 DF, QD
  3. SILDENAFIL [Concomitant]
     Active Substance: SILDENAFIL
     Dosage: 1 DF, Q8HR
  4. LEVOTHYROXINE SODIUM [Concomitant]
     Active Substance: LEVOTHYROXINE SODIUM
     Indication: Hypothyroidism
     Dosage: 100 UG, QD IN FASTING
  5. SPIRONOLACTONE [Concomitant]
     Active Substance: SPIRONOLACTONE
     Dosage: 25 MG, QD
  6. FUROSEMIDE [Concomitant]
     Active Substance: FUROSEMIDE
     Dosage: 40 MG, QD
  7. MESALAMINE [Concomitant]
     Active Substance: MESALAMINE
     Indication: Colitis ulcerative
     Dosage: 1000 MG, Q8HR

REACTIONS (9)
  - Tachycardia [Recovered/Resolved]
  - Heart rate decreased [Unknown]
  - Electrocardiogram abnormal [Unknown]
  - Gastroenteritis [Recovered/Resolved]
  - Dyspnoea [Not Recovered/Not Resolved]
  - Fatigue [Unknown]
  - Nausea [Unknown]
  - Cardiac disorder [Unknown]
  - Therapy cessation [Unknown]

NARRATIVE: CASE EVENT DATE: 20240901
